FAERS Safety Report 15761879 (Version 3)
Quarter: 2019Q1

REPORT INFORMATION
  Report Type: Spontaneous
  Country: US (occurrence: US)
  Receive Date: 20181226
  Receipt Date: 20190118
  Transmission Date: 20190417
  Serious: Yes (Other)
  Sender: FDA-Public Use
  Company Number: US-SUNOVION-2018SUN004995

PATIENT
  Age: 17 Year
  Sex: Female

DRUGS (2)
  1. LATUDA [Suspect]
     Active Substance: LURASIDONE HYDROCHLORIDE
     Dosage: 20 MG, QD
     Route: 048
     Dates: start: 20181201, end: 20181210
  2. LATUDA [Suspect]
     Active Substance: LURASIDONE HYDROCHLORIDE
     Dosage: 20 MG, QD
     Route: 048
     Dates: start: 20181030, end: 20181120

REACTIONS (4)
  - Angioedema [Recovered/Resolved]
  - Impetigo [Recovered/Resolved]
  - Rash [Recovered/Resolved]
  - Urticaria [Recovered/Resolved]

NARRATIVE: CASE EVENT DATE: 20181120
